FAERS Safety Report 18519303 (Version 1)
Quarter: 2020Q4

REPORT INFORMATION
  Report Type: Report from Study
  Country: US (occurrence: US)
  Receive Date: 20201119
  Receipt Date: 20201119
  Transmission Date: 20210114
  Serious: Yes (Hospitalization, Other)
  Sender: FDA-Public Use
  Company Number: US-JNJFOC-20170103093

PATIENT
  Age: 67 Year
  Sex: Male
  Weight: 117 kg

DRUGS (35)
  1. LOMOTIL [Concomitant]
     Active Substance: ATROPINE SULFATE\DIPHENOXYLATE HYDROCHLORIDE
     Indication: DIARRHOEA
     Route: 048
     Dates: start: 20160524
  2. ASPIRIN. [Concomitant]
     Active Substance: ASPIRIN
     Indication: CARDIOVASCULAR EVENT PROPHYLAXIS
     Route: 048
     Dates: start: 2006
  3. HUMALOG [Concomitant]
     Active Substance: INSULIN LISPRO
     Indication: DIABETES MELLITUS
     Route: 058
     Dates: start: 2011
  4. TAMOXIFEN [Concomitant]
     Active Substance: TAMOXIFEN
     Indication: GYNAECOMASTIA
  5. KEFLEX [Concomitant]
     Active Substance: CEPHALEXIN
     Indication: TOOTH INFECTION
     Route: 048
     Dates: start: 20161124, end: 20170426
  6. BYDUREON [Concomitant]
     Active Substance: EXENATIDE
     Indication: CORONARY ARTERY DISEASE
     Route: 058
     Dates: start: 2011
  7. SYNTHROID [Concomitant]
     Active Substance: LEVOTHYROXINE SODIUM
     Indication: HYPOTHYROIDISM
     Route: 065
     Dates: start: 2006, end: 20170523
  8. SYNTHROID [Concomitant]
     Active Substance: LEVOTHYROXINE SODIUM
     Route: 065
     Dates: start: 20170524
  9. TAMSULOSIN [Concomitant]
     Active Substance: TAMSULOSIN
     Indication: URINARY HESITATION
     Route: 065
     Dates: start: 20110907
  10. LACTOBACILLUS RHAMNOSUS [Concomitant]
     Active Substance: LACTOBACILLUS RHAMNOSUS
     Route: 048
     Dates: start: 2011
  11. CANDESARTAN CILEXETIL. [Concomitant]
     Active Substance: CANDESARTAN CILEXETIL
     Route: 048
     Dates: start: 2001
  12. OMEPRAZOLE. [Concomitant]
     Active Substance: OMEPRAZOLE
     Indication: GASTROINTESTINAL DISORDER
     Route: 048
     Dates: start: 1996
  13. KRILL OIL [Concomitant]
     Active Substance: DIETARY SUPPLEMENT\KRILL OIL
     Indication: NUTRITIONAL SUPPLEMENTATION
     Route: 048
     Dates: start: 1996
  14. RANEXA [Concomitant]
     Active Substance: RANOLAZINE
     Indication: CORONARY ARTERY DISEASE
     Route: 048
     Dates: start: 2016
  15. VITAMIN B12 [Concomitant]
     Active Substance: CYANOCOBALAMIN
     Indication: VITAMIN SUPPLEMENTATION
     Route: 048
     Dates: start: 2014
  16. VITAMIN D3 [Concomitant]
     Active Substance: CHOLECALCIFEROL
     Indication: VITAMIN SUPPLEMENTATION
     Route: 048
     Dates: start: 2006
  17. ATORVASTATIN CALCIUM. [Concomitant]
     Active Substance: ATORVASTATIN CALCIUM
     Indication: HYPERCHOLESTEROLAEMIA
     Route: 048
     Dates: start: 20161012, end: 20170329
  18. LUPRON [Concomitant]
     Active Substance: LEUPROLIDE ACETATE
     Dates: start: 20110422
  19. ABIRATERONE ACETATE. [Suspect]
     Active Substance: ABIRATERONE ACETATE
     Indication: PROSTATE CANCER METASTATIC
     Route: 048
     Dates: start: 20160623, end: 20170101
  20. BYDUREON [Concomitant]
     Active Substance: EXENATIDE
     Indication: DIABETES MELLITUS
  21. ZOLPIDEM [Concomitant]
     Active Substance: ZOLPIDEM TARTRATE
     Indication: INSOMNIA
     Route: 048
     Dates: start: 20110520
  22. ATORVASTATIN CALCIUM. [Concomitant]
     Active Substance: ATORVASTATIN CALCIUM
     Route: 048
     Dates: start: 2001
  23. APALUTAMIDE [Suspect]
     Active Substance: APALUTAMIDE
     Indication: PROSTATE CANCER METASTATIC
     Route: 048
     Dates: start: 20160623, end: 20170101
  24. IBUPROFEN. [Concomitant]
     Active Substance: IBUPROFEN
     Indication: PAIN
     Route: 048
     Dates: start: 2006
  25. TOUJEO [Concomitant]
     Active Substance: INSULIN GLARGINE
     Route: 048
     Dates: start: 2006
  26. PREDNISONE. [Suspect]
     Active Substance: PREDNISONE
     Indication: PROSTATE CANCER METASTATIC
     Route: 048
     Dates: start: 20160623, end: 20170101
  27. MULTIVITAMINS [Concomitant]
     Active Substance: VITAMINS
     Indication: VITAMIN SUPPLEMENTATION
     Route: 048
     Dates: start: 1996
  28. TYLENOL [Concomitant]
     Active Substance: ACETAMINOPHEN
     Indication: HEADACHE
     Route: 048
     Dates: start: 20160928
  29. EFFIENT [Concomitant]
     Active Substance: PRASUGREL HYDROCHLORIDE
     Indication: CORONARY ARTERY DISEASE
     Route: 048
     Dates: start: 2001
  30. FENOFIBRATE. [Concomitant]
     Active Substance: FENOFIBRATE
     Indication: HYPERCHOLESTEROLAEMIA
     Route: 048
     Dates: start: 2001
  31. GABAPENTIN. [Concomitant]
     Active Substance: GABAPENTIN
     Indication: PERIPHERAL SENSORY NEUROPATHY
     Route: 048
     Dates: start: 2006
  32. INVOKANA [Concomitant]
     Active Substance: CANAGLIFLOZIN
     Indication: DIABETES MELLITUS
     Route: 048
     Dates: start: 2011
  33. DENOSUMAB [Concomitant]
     Active Substance: DENOSUMAB
     Route: 058
     Dates: start: 20110422
  34. TAMOXIFEN [Concomitant]
     Active Substance: TAMOXIFEN
     Indication: HOT FLUSH
     Route: 048
     Dates: start: 20120229
  35. CANDESARTAN CILEXETIL. [Concomitant]
     Active Substance: CANDESARTAN CILEXETIL
     Indication: HYPERTENSION
     Route: 048
     Dates: start: 2007, end: 20170816

REACTIONS (1)
  - Femur fracture [Recovered/Resolved]

NARRATIVE: CASE EVENT DATE: 20170102
